FAERS Safety Report 15476824 (Version 4)
Quarter: 2019Q2

REPORT INFORMATION
  Report Type: Spontaneous
  Country: US (occurrence: US)
  Receive Date: 20181009
  Receipt Date: 20190624
  Transmission Date: 20190711
  Serious: Yes (Disabling, Other)
  Sender: FDA-Public Use
  Company Number: US-AMGEN-USASP2018136998

PATIENT
  Age: 67 Year
  Sex: Female
  Weight: 70.3 kg

DRUGS (4)
  1. PROLIA [Suspect]
     Active Substance: DENOSUMAB
     Indication: OSTEOPOROSIS POSTMENOPAUSAL
     Dosage: UNK
     Route: 065
     Dates: start: 201806, end: 201806
  2. CRESTOR [Concomitant]
     Active Substance: ROSUVASTATIN CALCIUM
     Dosage: 5 MILLIGRAM
  3. PROLIA [Suspect]
     Active Substance: DENOSUMAB
     Indication: BONE LOSS
  4. CALCIUM [Concomitant]
     Active Substance: CALCIUM
     Dosage: UNK
     Dates: start: 20180423

REACTIONS (5)
  - Gait disturbance [Unknown]
  - Rib fracture [Unknown]
  - Ankylosing spondylitis [Recovered/Resolved]
  - Atelectasis [Unknown]
  - Pain [Unknown]

NARRATIVE: CASE EVENT DATE: 2018
